FAERS Safety Report 17787624 (Version 8)
Quarter: 2020Q4

REPORT INFORMATION
  Report Type: Spontaneous
  Country: US (occurrence: US)
  Receive Date: 20200514
  Receipt Date: 20201230
  Transmission Date: 20210113
  Serious: Yes (Congenital Anomaly, Other)
  Sender: FDA-Public Use
  Company Number: NVSC2020US131166

PATIENT
  Sex: Female

DRUGS (3)
  1. ZOFRAN [Suspect]
     Active Substance: ONDANSETRON HYDROCHLORIDE
     Indication: FOETAL EXPOSURE DURING PREGNANCY
     Route: 064
  2. ZOFRAN [Suspect]
     Active Substance: ONDANSETRON HYDROCHLORIDE
     Indication: FOETAL EXPOSURE DURING PREGNANCY
     Dosage: MOTHER DOSE: 1 DF, Q6H, PRN
     Route: 064
  3. ZOFRAN [Suspect]
     Active Substance: ONDANSETRON HYDROCHLORIDE
     Indication: FOETAL EXPOSURE DURING PREGNANCY
     Dosage: MOTHER DOSE: UNK, QD
     Route: 064

REACTIONS (74)
  - Pericardial effusion [Unknown]
  - Diarrhoea [Unknown]
  - Back pain [Unknown]
  - Neck pain [Unknown]
  - Chest pain [Unknown]
  - Cyanosis [Unknown]
  - Illness [Unknown]
  - Limb discomfort [Unknown]
  - Atrial septal defect [Unknown]
  - Postoperative wound infection [Unknown]
  - Failure to thrive [Unknown]
  - Pneumonia [Unknown]
  - Tricuspid valve incompetence [Unknown]
  - Foetal exposure during pregnancy [Unknown]
  - Decreased appetite [Unknown]
  - Language disorder [Unknown]
  - Gastroenteritis [Unknown]
  - Bronchitis [Unknown]
  - Bundle branch block right [Unknown]
  - Eating disorder [Unknown]
  - Nasopharyngitis [Unknown]
  - Ligament sprain [Unknown]
  - Cardiomegaly [Unknown]
  - Colitis [Unknown]
  - Pulmonary oedema [Unknown]
  - Discomfort [Unknown]
  - Pain [Unknown]
  - Weight gain poor [Unknown]
  - Developmental delay [Unknown]
  - Oropharyngeal pain [Unknown]
  - Cough [Unknown]
  - Cardiac murmur [Unknown]
  - Dizziness [Unknown]
  - Pulmonary valve incompetence [Unknown]
  - Pneumonia pneumococcal [Unknown]
  - Jaundice neonatal [Unknown]
  - Speech disorder [Unknown]
  - Dysphagia [Unknown]
  - Atelectasis [Unknown]
  - Right ventricular enlargement [Unknown]
  - Dyspnoea [Unknown]
  - Left ventricular dysfunction [Unknown]
  - Right ventricular dilatation [Unknown]
  - Short stature [Unknown]
  - Ventricular septal defect [Unknown]
  - Pulmonary hypoplasia [Unknown]
  - Right-to-left cardiac shunt [Unknown]
  - Pyrexia [Unknown]
  - Rhinorrhoea [Unknown]
  - Upper respiratory tract infection [Unknown]
  - Sinus tachycardia [Unknown]
  - Pleural effusion [Unknown]
  - Nasal congestion [Unknown]
  - Hyperhidrosis [Unknown]
  - Ventricular dysfunction [Unknown]
  - Stenosis [Unknown]
  - Fallot^s tetralogy [Unknown]
  - Heart disease congenital [Unknown]
  - Injury [Unknown]
  - Abdominal distension [Unknown]
  - Vomiting [Unknown]
  - Dermatitis atopic [Unknown]
  - Joint injury [Unknown]
  - Erythema [Unknown]
  - Rash [Unknown]
  - Fall [Unknown]
  - Acute sinusitis [Unknown]
  - Patent ductus arteriosus [Unknown]
  - Right ventricular hypertrophy [Unknown]
  - Impetigo [Unknown]
  - Conjunctivitis [Unknown]
  - Menstruation irregular [Unknown]
  - Incision site swelling [Unknown]
  - Contusion [Unknown]
